FAERS Safety Report 6330009-2 (Version None)
Quarter: 2009Q3

REPORT INFORMATION
  Report Type: 
  Country: None (occurrence: None)
  Receive Date: 20090825
  Receipt Date: 20090820
  Transmission Date: 20100115
  Serious: Yes (Death)
  Sender: FDA-Public Use
  Company Number: CHPA2009US17360

PATIENT
  Sex: Female

DRUGS (1)
  1. BENEFIBER [Suspect]
     Indication: DIARRHOEA
     Dosage: ORAL
     Route: 048

REACTIONS (1)
  - DEATH [None]
